FAERS Safety Report 7631401-6 (Version None)
Quarter: 2011Q3

REPORT INFORMATION
  Report Type: 
  Country: None (occurrence: None)
  Receive Date: 20110725
  Receipt Date: 20110713
  Transmission Date: 20111222
  Serious: Yes (Other)
  Sender: FDA-Public Use
  Company Number: US-JNJFOC-20110706590

PATIENT
  Sex: Male
  Weight: 122.47 kg

DRUGS (5)
  1. REMICADE [Suspect]
     Route: 042
     Dates: start: 20110429
  2. HYDROCHLOROTHIAZIDE [Concomitant]
     Indication: HYPERTENSION
     Route: 048
  3. REMICADE [Suspect]
     Indication: RHEUMATOID ARTHRITIS
     Route: 042
     Dates: start: 20101008
  4. ARAVA [Concomitant]
     Indication: ARTHRITIS
     Route: 048
  5. MULTIGEN VITAMIN [Concomitant]
     Indication: ANAEMIA
     Route: 048

REACTIONS (4)
  - TRANSIENT ACANTHOLYTIC DERMATOSIS [None]
  - GASTROOESOPHAGEAL REFLUX DISEASE [None]
  - RASH PRURITIC [None]
  - INFUSION RELATED REACTION [None]
